FAERS Safety Report 8114285-1 (Version None)
Quarter: 2012Q1

REPORT INFORMATION
  Report Type: 
  Country: None (occurrence: None)
  Receive Date: 20120206
  Receipt Date: 20120127
  Transmission Date: 20120608
  Serious: Yes (Hospitalization)
  Sender: FDA-Public Use
  Company Number: US-BIOGENIDEC-2010BI006671

PATIENT
  Age: 47 Year
  Sex: Female
  Weight: 57 kg

DRUGS (10)
  1. AVONEX [Suspect]
     Route: 030
     Dates: start: 20100125, end: 20100823
  2. HYDROCODONE BITARTRATE [Concomitant]
  3. PROVIGIL [Concomitant]
  4. CYMBALTA [Concomitant]
  5. AVONEX [Suspect]
     Route: 030
     Dates: start: 20061204, end: 20090101
  6. MIDRIN [Concomitant]
  7. AVONEX [Suspect]
     Indication: MULTIPLE SCLEROSIS
     Route: 030
     Dates: start: 20020315, end: 20060516
  8. TOPAMAX [Concomitant]
  9. MORPHINE [Concomitant]
  10. VICOPROFEN [Concomitant]

REACTIONS (9)
  - COMPLEX PARTIAL SEIZURES [None]
  - PAIN [None]
  - FRONTAL LOBE EPILEPSY [None]
  - BACK PAIN [None]
  - MEMORY IMPAIRMENT [None]
  - HEPATIC ENZYME INCREASED [None]
  - FATIGUE [None]
  - MIGRAINE [None]
  - ANAEMIA [None]
